FAERS Safety Report 4675630-2 (Version None)
Quarter: 2005Q2

REPORT INFORMATION
  Report Type: 
  Country: None (occurrence: None)
  Receive Date: 20050525
  Receipt Date: 20050511
  Transmission Date: 20051028
  Serious: Yes (Disabling)
  Sender: FDA-Public Use
  Company Number: ERP05000077

PATIENT
  Age: 61 Year
  Sex: Female

DRUGS (5)
  1. ACTONEL [Suspect]
     Indication: OSTEOPOROSIS
     Dosage: DAILY,
     Route: 048
     Dates: start: 20030101, end: 20030101
  2. BISOPROLOL FUMARATE [Concomitant]
  3. DIHYDROERGOTOXINE MESYLATE [Concomitant]
  4. ASPIRIN [Concomitant]
  5. BEZAFIBRATE (BEZAFIBRATE) [Concomitant]

REACTIONS (7)
  - DISEASE RECURRENCE [None]
  - GLOSSODYNIA [None]
  - HELICOBACTER GASTRITIS [None]
  - INFECTION [None]
  - ORAL FUNGAL INFECTION [None]
  - TONGUE DISCOLOURATION [None]
  - WEIGHT DECREASED [None]
